FAERS Safety Report 8355392-8 (Version None)
Quarter: 2012Q2

REPORT INFORMATION
  Report Type: 
  Country: None (occurrence: None)
  Receive Date: 20120511
  Receipt Date: 20120507
  Transmission Date: 20120825
  Serious: Yes (Hospitalization)
  Sender: FDA-Public Use
  Company Number: US-GILEAD-2012-0054712

PATIENT
  Sex: Female

DRUGS (2)
  1. LETAIRIS [Suspect]
     Indication: PRODUCT USED FOR UNKNOWN INDICATION
     Dosage: 5 MG, UNK
     Route: 048
     Dates: start: 20110908
  2. FENTANYL CITRATE [Concomitant]

REACTIONS (5)
  - AMNESIA [None]
  - FALL [None]
  - PAIN [None]
  - NASOPHARYNGITIS [None]
  - ARTHROPATHY [None]
